FAERS Safety Report 9405648 (Version 1)
Quarter: 2013Q3

REPORT INFORMATION
  Report Type: Spontaneous
  Country: BR (occurrence: BR)
  Receive Date: 20130717
  Receipt Date: 20130717
  Transmission Date: 20140515
  Serious: Yes (Other)
  Sender: FDA-Public Use
  Company Number: CHNY2013BR001507

PATIENT
  Age: 70 Year
  Sex: Male

DRUGS (1)
  1. CIBALENA [Suspect]
     Indication: HEADACHE
     Dosage: 2 DF, QD
     Route: 048

REACTIONS (4)
  - Cerebrovascular accident [Recovering/Resolving]
  - Visual impairment [Unknown]
  - Headache [Unknown]
  - Incorrect drug administration duration [Unknown]
